FAERS Safety Report 21634064 (Version 18)
Quarter: 2025Q4

REPORT INFORMATION
  Report Type: Spontaneous
  Country: IN (occurrence: IN)
  Receive Date: 20221123
  Receipt Date: 20251117
  Transmission Date: 20260118
  Serious: Yes (Hospitalization, Other)
  Sender: PFIZER
  Company Number: IN-PFIZER INC-PV202200109457

PATIENT
  Age: 76 Year
  Sex: Female
  Weight: 70 kg

DRUGS (17)
  1. PALBOCICLIB [Suspect]
     Active Substance: PALBOCICLIB
     Indication: Breast cancer metastatic
     Dosage: 125 MG, 1X/DAY
     Route: 048
     Dates: start: 202111
  2. PALBOCICLIB [Suspect]
     Active Substance: PALBOCICLIB
     Dosage: 100 MG, 1X/DAY
     Route: 048
     Dates: start: 2022
  3. PALBOCICLIB [Suspect]
     Active Substance: PALBOCICLIB
     Dosage: 100 MG, CYCLIC (100MG ONCE DAILY X 21DAYS, THEN STOP FOR 14 DAYS)
     Route: 048
     Dates: end: 20230408
  4. PALBOCICLIB [Suspect]
     Active Substance: PALBOCICLIB
     Dosage: 100 MG, CYCLIC (100 MG ONCE DAILY X 21DAYS, THEN STOP FOR 14 DAYS)
     Route: 048
  5. PALBOCICLIB [Suspect]
     Active Substance: PALBOCICLIB
     Dosage: 100 MG, CYCLIC (OD 3/5 WEEKS X 6 MONTHS/OD TO TAKE 21 DAYS OUT OF 35 DAYS X 6 MONTHS)
     Route: 048
  6. PALBOCICLIB [Suspect]
     Active Substance: PALBOCICLIB
     Dosage: 75 MG, CYCLIC, 6 MONTHS TO TAKE 21 DAYS OUT OF 28 DAY
     Route: 048
  7. LETROZOLE [Concomitant]
     Active Substance: LETROZOLE
     Indication: Breast cancer metastatic
     Dosage: UNK
     Dates: start: 202111
  8. LETROZOLE [Concomitant]
     Active Substance: LETROZOLE
     Dosage: 2.5 MG, 1X/DAY FOR 6 MONTHS
     Route: 048
  9. SHELCAL OS [Concomitant]
     Dosage: 1 DF, 1X/DAY FOR 6 MONTHS
     Route: 048
  10. LUMIA 60K [Concomitant]
     Dosage: UNK, WEEKLY
  11. LUMIA 60K [Concomitant]
     Dosage: 60000 IU, ONCE A MONTH FOR 6 MONTHS
     Route: 048
  12. ULTRACET [Concomitant]
     Active Substance: ACETAMINOPHEN\TRAMADOL HYDROCHLORIDE
     Indication: Pain
     Dosage: 1 DF, AS NEEDED (SOS (MAX UPTO 3-4 TABS/DAY) (6 MONTHS))
  13. METOPROLOL SUCCINATE [Concomitant]
     Active Substance: METOPROLOL SUCCINATE
     Dosage: UNK
     Dates: start: 202210
  14. TORSEMIDE [Concomitant]
     Active Substance: TORSEMIDE
     Dosage: UNK
     Dates: start: 202210
  15. CANRENOATE POTASSIUM [Concomitant]
     Active Substance: CANRENOATE POTASSIUM
     Dosage: UNK
     Dates: start: 202210
  16. OXRA [Concomitant]
     Dosage: UNK
     Dates: start: 202210
  17. EVION LC [Concomitant]
     Dosage: 1 DF, DAILY (AFTER DINNER)
     Route: 048

REACTIONS (34)
  - Pulmonary oedema [Unknown]
  - Oxygen saturation decreased [Recovered/Resolved]
  - Pleural effusion [Unknown]
  - Glomerular filtration rate decreased [Unknown]
  - Cardiac failure chronic [Unknown]
  - Tooth disorder [Unknown]
  - Hallucination [Unknown]
  - Neutrophil count decreased [Unknown]
  - Haemoglobin decreased [Unknown]
  - White blood cell count decreased [Unknown]
  - Blood creatinine increased [Unknown]
  - Blood urea increased [Unknown]
  - Blood uric acid increased [Unknown]
  - Viral infection [Unknown]
  - Lymphoedema [Unknown]
  - Red blood cell count decreased [Unknown]
  - Haematocrit decreased [Unknown]
  - Mean cell volume increased [Unknown]
  - Mean cell haemoglobin increased [Unknown]
  - Red cell distribution width increased [Unknown]
  - Plateletcrit decreased [Unknown]
  - Tachycardia [Unknown]
  - Supraventricular extrasystoles [Unknown]
  - Extrasystoles [Unknown]
  - Diarrhoea [Unknown]
  - Arthralgia [Unknown]
  - Pain in extremity [Unknown]
  - Gait inability [Unknown]
  - Vomiting [Unknown]
  - Dysphagia [Unknown]
  - Asthenia [Unknown]
  - Brain scan abnormal [Unknown]
  - Off label use [Unknown]
  - Product use issue [Unknown]

NARRATIVE: CASE EVENT DATE: 20221001
